APPROVED DRUG PRODUCT: MYHIBBIN
Active Ingredient: MYCOPHENOLATE MOFETIL
Strength: 200MG/ML
Dosage Form/Route: SUSPENSION;ORAL
Application: N216482 | Product #001
Applicant: AZURITY PHARMACEUTICALS INC
Approved: May 1, 2024 | RLD: Yes | RS: Yes | Type: RX

PATENTS:
Patent 12194143 | Expires: Aug 16, 2039
Patent 12097285 | Expires: Aug 16, 2039
Patent 12226526 | Expires: Aug 16, 2039
Patent 11931455 | Expires: Aug 16, 2039
Patent 12097284 | Expires: Aug 16, 2039